FAERS Safety Report 15097032 (Version 2)
Quarter: 2018Q3

REPORT INFORMATION
  Report Type: Spontaneous
  Country: US (occurrence: US)
  Receive Date: 20180702
  Receipt Date: 20180917
  Transmission Date: 20181010
  Serious: No
  Sender: FDA-Public Use
  Company Number: US-GLAXOSMITHKLINE-US2018GSK115534

PATIENT
  Sex: Female

DRUGS (1)
  1. BENLYSTA [Suspect]
     Active Substance: BELIMUMAB
     Indication: SYSTEMIC LUPUS ERYTHEMATOSUS
     Dosage: 200 MG/ML, WE
     Dates: start: 20180125, end: 20180525

REACTIONS (6)
  - Heart rate increased [Unknown]
  - Balance disorder [Unknown]
  - Dizziness [Unknown]
  - Nervousness [Unknown]
  - Tremor [Unknown]
  - Dyspnoea [Unknown]
